FAERS Safety Report 5337664-4 (Version None)
Quarter: 2007Q2

REPORT INFORMATION
  Report Type: 
  Country: None (occurrence: None)
  Receive Date: 20070315
  Receipt Date: 20060705
  Transmission Date: 20071010
  Serious: Yes (Hospitalization, Other)
  Sender: FDA-Public Use
  Company Number: PHEH2006US08592

PATIENT
  Age: 35 Year
  Sex: Male
  Weight: 76 kg

DRUGS (7)
  1. TRILEPTAL [Suspect]
     Dates: end: 20060605
  2. TEMODAR [Suspect]
     Indication: ASTROCYTOMA
     Dosage: 150 MG, QD, ORAL
     Route: 048
     Dates: start: 20060503, end: 20060605
  3. BACTRIM [Suspect]
     Dates: end: 20060530
  4. REGLAN [Suspect]
     Dates: end: 20060605
  5. DILANTIN KAPSEAL [Concomitant]
  6. PREDNISONE TAB [Concomitant]
  7. BENADRYL (AMMONIUM CHLORIDE, DIPHENHYDRAMINE HYDROCHLORIDE, MENTHOL, S [Concomitant]

REACTIONS (6)
  - CELLULITIS [None]
  - DRUG HYPERSENSITIVITY [None]
  - ERYTHEMA MULTIFORME [None]
  - PRURITUS [None]
  - SKIN EXFOLIATION [None]
  - SKIN LESION [None]
